FAERS Safety Report 9747148 (Version 1)
Quarter: 2013Q4

REPORT INFORMATION
  Report Type: Spontaneous
  Country: US (occurrence: US)
  Receive Date: 20131211
  Receipt Date: 20131211
  Transmission Date: 20140711
  Serious: No
  Sender: FDA-Public Use
  Company Number: US-TEVA-448618USA

PATIENT
  Age: 42 Year
  Sex: Female
  Weight: 81.72 kg

DRUGS (7)
  1. COPAXONE [Suspect]
     Indication: MULTIPLE SCLEROSIS
     Dates: start: 201308, end: 20131129
  2. LEXAPRO [Concomitant]
     Indication: DEPRESSION
  3. VITAMIN D 10,000 [Concomitant]
     Indication: SUPPLEMENTATION THERAPY
  4. VITAMIN B12 [Concomitant]
     Indication: SUPPLEMENTATION THERAPY
  5. IBUPROFEN [Concomitant]
     Indication: PAIN
  6. PERCOCET [Concomitant]
     Indication: PAIN
     Dosage: 5/325 MG
  7. ADDERALL [Concomitant]
     Indication: ATTENTION DEFICIT/HYPERACTIVITY DISORDER

REACTIONS (6)
  - Malaise [Recovered/Resolved]
  - Flushing [Recovered/Resolved]
  - Dyspnoea [Recovered/Resolved]
  - Chest pain [Recovered/Resolved]
  - Influenza like illness [Recovered/Resolved]
  - Anxiety [Recovered/Resolved]
